FAERS Safety Report 4689239-8 (Version None)
Quarter: 2005Q2

REPORT INFORMATION
  Report Type: 
  Country: None (occurrence: None)
  Receive Date: 20050613
  Receipt Date: 20050310
  Transmission Date: 20051028
  Serious: Yes (Hospitalization, Other)
  Sender: FDA-Public Use
  Company Number: US-MERCK-0503USA02021

PATIENT
  Age: 53 Year
  Sex: Male
  Weight: 136 kg

DRUGS (17)
  1. VIOXX [Suspect]
     Indication: ARTHRALGIA
     Route: 048
     Dates: start: 20010801, end: 20030101
  2. VIOXX [Suspect]
     Route: 048
     Dates: start: 20030101, end: 20041014
  3. AMARYL [Concomitant]
     Indication: DIABETES MELLITUS
     Route: 065
  4. LEXAPRO [Concomitant]
     Indication: STRESS
     Route: 065
     Dates: end: 20000101
  5. ASPIRIN [Concomitant]
     Route: 065
  6. GLUCOPHAGE [Concomitant]
     Indication: DIABETES MELLITUS
     Route: 065
  7. GLUCOPHAGE [Concomitant]
     Route: 065
  8. CELEBREX [Concomitant]
     Route: 065
     Dates: start: 20030701, end: 20030701
  9. VICODIN [Concomitant]
     Indication: DIABETES MELLITUS
     Route: 065
  10. VENTILAN (ALBUTEROL) [Concomitant]
     Route: 065
  11. VITAMINS (UNSPECIFIED) [Concomitant]
     Route: 065
  12. CHONDROITIN SULFATE SODIUM AND GLUCOSAMINE SULFATE [Concomitant]
     Route: 065
  13. NITROGLYCERIN [Concomitant]
     Indication: CHEST PAIN
     Route: 065
  14. IMDUR [Concomitant]
     Route: 065
  15. ALUPENT [Concomitant]
     Indication: PULMONARY CONGESTION
     Route: 065
  16. ALUPENT [Concomitant]
     Indication: WHEEZING
     Route: 065
  17. LORCET-HD [Concomitant]
     Indication: ARTHRALGIA
     Route: 065

REACTIONS (24)
  - ANGINA UNSTABLE [None]
  - ATRIAL FLUTTER [None]
  - BLOOD GLUCOSE DECREASED [None]
  - BLOOD GLUCOSE INCREASED [None]
  - BODY TEMPERATURE INCREASED [None]
  - CARDIAC FAILURE CONGESTIVE [None]
  - CAROTID ARTERY ATHEROMA [None]
  - CHEST DISCOMFORT [None]
  - CHEST PAIN [None]
  - CORONARY ARTERY DISEASE [None]
  - DYSPNOEA [None]
  - EFFUSION [None]
  - EMOTIONAL DISTRESS [None]
  - FLUID OVERLOAD [None]
  - FLUID RETENTION [None]
  - IMPLANT SITE INFECTION [None]
  - INCISION SITE COMPLICATION [None]
  - MYOCARDIAL INFARCTION [None]
  - OEDEMA PERIPHERAL [None]
  - PAROTITIS [None]
  - PLEURAL EFFUSION [None]
  - SLEEP APNOEA SYNDROME [None]
  - THROAT TIGHTNESS [None]
  - VENTRICULAR DYSFUNCTION [None]
